FAERS Safety Report 9871125 (Version 1)
Quarter: 2014Q1

REPORT INFORMATION
  Report Type: Spontaneous
  Country: US (occurrence: None)
  Receive Date: 20140204
  Receipt Date: 20140204
  Transmission Date: 20141002
  Serious: Yes (Death)
  Sender: FDA-Public Use
  Company Number: None

PATIENT
  Age: 48 Year
  Sex: Male

DRUGS (1)
  1. MEKINIST 2MG GSK [Suspect]
     Indication: MALIGNANT MELANOMA
     Route: 048
     Dates: start: 20130921, end: 20140127

REACTIONS (1)
  - Death [None]
